FAERS Safety Report 7023622-0 (Version None)
Quarter: 2010Q3

REPORT INFORMATION
  Report Type: 
  Country: None (occurrence: None)
  Receive Date: 20100930
  Receipt Date: 20100930
  Transmission Date: 20110219
  Serious: Yes (Hospitalization)
  Sender: FDA-Public Use
  Company Number: None

PATIENT
  Age: 70 Year
  Sex: Male
  Weight: 74.8435 kg

DRUGS (1)
  1. SIMVASTATIN [Suspect]
     Indication: BLOOD CHOLESTEROL INCREASED
     Dosage: 1 TABLET DAILY BEDTIME PO
     Route: 048
     Dates: start: 20090720, end: 20100915

REACTIONS (3)
  - ASTHMA [None]
  - NASOPHARYNGITIS [None]
  - OROPHARYNGEAL PAIN [None]
